FAERS Safety Report 9458167 (Version 1)
Quarter: 2013Q3

REPORT INFORMATION
  Report Type: Spontaneous
  Country: US (occurrence: None)
  Receive Date: 20130812
  Receipt Date: 20130812
  Transmission Date: 20140515
  Serious: Yes (Other)
  Sender: FDA-Public Use
  Company Number: None

PATIENT
  Age: 77 Year
  Sex: Male
  Weight: 75 kg

DRUGS (4)
  1. SIMVASTATIN [Suspect]
     Indication: BLOOD CHOLESTEROL
     Dates: start: 20120401
  2. METOCLOPRAMIDE [Suspect]
     Indication: ABDOMINAL DISTENSION
     Dosage: ROUTE INELIGIBLE
     Dates: start: 2011
  3. METOCLOPRAMIDE [Suspect]
     Indication: FLATULENCE
     Dosage: ROUTE INELIGIBLE
     Dates: start: 2011
  4. OMEPRAZOLE (PRILOSEC) [Concomitant]

REACTIONS (2)
  - Somnolence [None]
  - Diabetes mellitus [None]
